FAERS Safety Report 9804652 (Version 3)
Quarter: 2014Q1

REPORT INFORMATION
  Report Type: Spontaneous
  Country: US (occurrence: US)
  Receive Date: 20140108
  Receipt Date: 20140220
  Transmission Date: 20141002
  Serious: Yes (Disabling)
  Sender: FDA-Public Use
  Company Number: US-009507513-1205USA00069

PATIENT
  Sex: Male

DRUGS (1)
  1. PROPECIA [Suspect]
     Indication: ALOPECIA
     Dosage: UNK
     Route: 048
     Dates: start: 20000927, end: 20031212

REACTIONS (7)
  - Emotional distress [Unknown]
  - Cognitive disorder [Unknown]
  - Sexual dysfunction [Unknown]
  - Erectile dysfunction [Not Recovered/Not Resolved]
  - Loss of libido [Not Recovered/Not Resolved]
  - Semen volume decreased [Unknown]
  - Ejaculation failure [Unknown]
